FAERS Safety Report 10337506 (Version 1)
Quarter: 2014Q3

REPORT INFORMATION
  Report Type: Report from Study
  Country: US (occurrence: US)
  Receive Date: 20140724
  Receipt Date: 20140724
  Transmission Date: 20150326
  Serious: Yes (Other)
  Sender: FDA-Public Use
  Company Number: US-ROCHE-1438137

PATIENT
  Sex: Female
  Weight: 34.35 kg

DRUGS (5)
  1. CAPOTEN (UNITED STATES) [Concomitant]
     Route: 048
  2. NUTROPIN AQ [Suspect]
     Active Substance: SOMATROPIN
     Indication: TURNER^S SYNDROME
     Route: 058
  3. MIRALAX [Concomitant]
     Active Substance: POLYETHYLENE GLYCOL 3350
     Route: 048
  4. ZYRTEC [Concomitant]
     Active Substance: CETIRIZINE HYDROCHLORIDE
     Route: 048
  5. MELATONIN [Concomitant]
     Active Substance: MELATONIN
     Route: 048

REACTIONS (1)
  - Cystic lymphangioma [Unknown]
